FAERS Safety Report 9312993 (Version 1)
Quarter: 2013Q2

REPORT INFORMATION
  Report Type: Spontaneous
  Country: US (occurrence: US)
  Receive Date: 20130528
  Receipt Date: 20130528
  Transmission Date: 20140414
  Serious: No
  Sender: FDA-Public Use
  Company Number: US-ABBOTT-13P-163-1064346-00

PATIENT
  Age: 65 Year
  Sex: Male
  Weight: 103.06 kg

DRUGS (8)
  1. ANDROGEL 1.62% [Suspect]
     Indication: BLOOD TESTOSTERONE DECREASED
     Dosage: 2 PUMPS
     Dates: start: 20130308
  2. MELATONIN [Concomitant]
     Indication: INSOMNIA
  3. XANAX [Concomitant]
     Indication: ANXIETY
  4. LORTAB [Concomitant]
     Indication: BACK PAIN
  5. LISINOPRIL [Concomitant]
     Indication: HYPERTENSION
  6. CITALOPRAM [Concomitant]
     Indication: STRESS
  7. FENOFIBRATE [Concomitant]
     Indication: BLOOD TRIGLYCERIDES INCREASED
  8. ATORVASTATIN [Concomitant]
     Indication: BLOOD CHOLESTEROL INCREASED

REACTIONS (1)
  - Scratch [Not Recovered/Not Resolved]
